FAERS Safety Report 7330647-4 (Version None)
Quarter: 2011Q1

REPORT INFORMATION
  Report Type: 
  Country: None (occurrence: None)
  Receive Date: 20110304
  Receipt Date: 20110223
  Transmission Date: 20110831
  Serious: Yes (Life-Threatening, Hospitalization)
  Sender: FDA-Public Use
  Company Number: GB-TEVA-269134ISR

PATIENT
  Age: 76 Year
  Sex: Male

DRUGS (3)
  1. ONDANSETRON [Suspect]
     Indication: PROPHYLAXIS OF NAUSEA AND VOMITING
     Route: 042
     Dates: start: 20110111, end: 20110111
  2. IRINOTECAN [Suspect]
     Indication: COLON CANCER STAGE IV
     Route: 042
     Dates: start: 20110111, end: 20110111
  3. DEXAMETHASONE [Suspect]
     Indication: PROPHYLAXIS OF NAUSEA AND VOMITING
     Route: 048
     Dates: start: 20110111, end: 20110113

REACTIONS (4)
  - ACUTE MYOCARDIAL INFARCTION [None]
  - VOMITING [None]
  - CHEST DISCOMFORT [None]
  - DIARRHOEA [None]
